FAERS Safety Report 6695793-7 (Version None)
Quarter: 2010Q2

REPORT INFORMATION
  Report Type: 
  Country: None (occurrence: None)
  Receive Date: 20100421
  Receipt Date: 20100416
  Transmission Date: 20101027
  Serious: Yes (Other)
  Sender: FDA-Public Use
  Company Number: CL-105-2010

PATIENT
  Age: 93 Year
  Sex: Female

DRUGS (9)
  1. CIPROFLOXACIN [Suspect]
     Indication: LOWER RESPIRATORY TRACT INFECTION
     Dosage: 500 MG BD ORAL USE
     Route: 048
     Dates: start: 20100406, end: 20100408
  2. CITALOPRAM [Concomitant]
  3. CARBIDOPA [Concomitant]
  4. LEVODOPA [Concomitant]
  5. MOVICOL  (POLYETHYLENE GLYCOL 3350) [Concomitant]
  6. POTASSIUM CHLORIDE [Concomitant]
  7. SODIUM BICARBONATE [Concomitant]
  8. SODIUM CHLORIDE [Concomitant]
  9. LEVOTHYROXINE [Concomitant]

REACTIONS (5)
  - BLOOD ELECTROLYTES ABNORMAL [None]
  - CONVULSION [None]
  - CONVULSIVE THRESHOLD LOWERED [None]
  - DRUG INTERACTION [None]
  - RENAL IMPAIRMENT [None]
